FAERS Safety Report 10390788 (Version 1)
Quarter: 2014Q3

REPORT INFORMATION
  Report Type: Spontaneous
  Country: US (occurrence: None)
  Receive Date: 20140815
  Receipt Date: 20140815
  Transmission Date: 20150326
  Serious: Yes (Death)
  Sender: FDA-Public Use
  Company Number: None

PATIENT
  Age: 42 Year
  Sex: Male
  Weight: 102.06 kg

DRUGS (1)
  1. SAPHRIS [Suspect]
     Active Substance: ASENAPINE MALEATE
     Indication: PARANOIA
     Dosage: 1 PILL BID SUBLINGUAL
     Route: 060

REACTIONS (2)
  - Alcohol use [None]
  - Treatment noncompliance [None]

NARRATIVE: CASE EVENT DATE: 20140706
